FAERS Safety Report 7423745-8 (Version None)
Quarter: 2011Q2

REPORT INFORMATION
  Report Type: 
  Country: None (occurrence: None)
  Receive Date: 20110413
  Receipt Date: 20110413
  Transmission Date: 20111010
  Serious: Yes (Other)
  Sender: FDA-Public Use
  Company Number: None

PATIENT
  Age: 34 Year
  Sex: Female
  Weight: 74.8435 kg

DRUGS (1)
  1. MIRENA [Suspect]
     Indication: CONTRACEPTION
     Dosage: 20 MCG PER DAY INTRA-UTERINE
     Route: 015
     Dates: start: 20100527, end: 20110410

REACTIONS (2)
  - MENORRHAGIA [None]
  - DEVICE DISLOCATION [None]
